FAERS Safety Report 5469730-7 (Version None)
Quarter: 2007Q3

REPORT INFORMATION
  Report Type: 
  Country: None (occurrence: None)
  Receive Date: 20070927
  Receipt Date: 20070409
  Transmission Date: 20080115
  Serious: No
  Sender: FDA-Public Use
  Company Number: US-AMGEN-US218793

PATIENT
  Sex: Female

DRUGS (5)
  1. NEUPOGEN [Suspect]
     Indication: CHEMOTHERAPY
  2. ZOFRAN [Concomitant]
  3. DEXAMETHASONE 0.5MG TAB [Concomitant]
  4. ADRIAMYCIN PFS [Concomitant]
  5. CYTOXAN [Concomitant]

REACTIONS (3)
  - ABDOMINAL PAIN [None]
  - HYPERSENSITIVITY [None]
  - SWOLLEN TONGUE [None]
